FAERS Safety Report 8976624 (Version 3)
Quarter: 2014Q2

REPORT INFORMATION
  Report Type: Spontaneous
  Country: JP (occurrence: JP)
  Receive Date: 20121220
  Receipt Date: 20131018
  Transmission Date: 20141212
  Serious: Yes (Other)
  Sender: FDA-Public Use
  Company Number: JP-PFIZER INC-2012323680

PATIENT
  Age: 73 Year
  Sex: Female

DRUGS (4)
  1. ADRIAMYCIN [Suspect]
     Dosage: UNK
  2. CISPLATIN [Suspect]
     Dosage: UNK
  3. METHOTREXATE SODIUM [Suspect]
     Dosage: UNK
  4. VINBLASTINE SULFATE [Suspect]
     Dosage: UNK

REACTIONS (1)
  - Duodenal ulcer [Not Recovered/Not Resolved]
